FAERS Safety Report 9550870 (Version 1)
Quarter: 2013Q3

REPORT INFORMATION
  Report Type: Spontaneous
  Country: US (occurrence: US)
  Receive Date: 20130924
  Receipt Date: 20130924
  Transmission Date: 20140515
  Serious: No
  Sender: FDA-Public Use
  Company Number: US-SANOFI-AVENTIS-2013SA040433

PATIENT
  Age: 44 Year
  Sex: Female
  Weight: 79 kg

DRUGS (12)
  1. AUBAGIO [Suspect]
     Indication: MULTIPLE SCLEROSIS
     Route: 048
     Dates: start: 20130325, end: 20130418
  2. AUBAGIO [Suspect]
     Indication: MULTIPLE SCLEROSIS
     Route: 048
  3. EFFECTOR [Concomitant]
     Indication: DEPRESSION
  4. GABAPENTIN [Concomitant]
  5. CYCLOBENZAPRINE [Concomitant]
  6. CYMBALTA [Concomitant]
  7. PREDNISONE [Concomitant]
  8. FLEXERIL [Concomitant]
  9. VITAMIN C [Concomitant]
  10. MULTIVITAMINS [Concomitant]
  11. MAGNESIUM [Concomitant]
  12. VITAMIN B6 [Concomitant]

REACTIONS (13)
  - Vision blurred [Unknown]
  - Libido decreased [Not Recovered/Not Resolved]
  - Activities of daily living impaired [Not Recovered/Not Resolved]
  - Palpitations [Unknown]
  - Chest pain [Not Recovered/Not Resolved]
  - Dizziness [Recovering/Resolving]
  - Headache [Recovered/Resolved]
  - Functional gastrointestinal disorder [Recovering/Resolving]
  - Chromaturia [Unknown]
  - Paraesthesia [Unknown]
  - Hypoaesthesia [Unknown]
  - Nausea [Unknown]
  - Diarrhoea [Unknown]
